FAERS Safety Report 15555541 (Version 1)
Quarter: 2018Q4

REPORT INFORMATION
  Report Type: Spontaneous
  Country: US (occurrence: US)
  Receive Date: 20181026
  Receipt Date: 20181026
  Transmission Date: 20190205
  Serious: No
  Sender: FDA-Public Use
  Company Number: None

PATIENT
  Age: 62 Year
  Sex: Male
  Weight: 83.7 kg

DRUGS (4)
  1. PRAVASTATIN. [Concomitant]
     Active Substance: PRAVASTATIN
  2. CARVEDILOL. [Concomitant]
     Active Substance: CARVEDILOL
  3. MELOXICAM. [Suspect]
     Active Substance: MELOXICAM
     Indication: SCIATICA
     Dosage: ?          QUANTITY:1 TABLET(S);?
     Dates: start: 20181004, end: 20181018
  4. MELOXICAM. [Suspect]
     Active Substance: MELOXICAM
     Indication: SPINAL PAIN
     Dosage: ?          QUANTITY:1 TABLET(S);?
     Dates: start: 20181004, end: 20181018

REACTIONS (4)
  - Loss of consciousness [None]
  - Hyperhidrosis [None]
  - Dizziness [None]
  - Fall [None]

NARRATIVE: CASE EVENT DATE: 20181018
